FAERS Safety Report 8821003 (Version 3)
Quarter: 2012Q4

REPORT INFORMATION
  Report Type: Report from Study
  Country: ES (occurrence: ES)
  Receive Date: 20121002
  Receipt Date: 20121012
  Transmission Date: 20130627
  Serious: Yes (Hospitalization)
  Sender: FDA-Public Use
  Company Number: ES-ROCHE-1136169

PATIENT
  Age: 47 Year
  Sex: Female
  Weight: 51 kg

DRUGS (4)
  1. PERTUZUMAB [Suspect]
     Indication: BREAST CANCER
     Dosage: Date of last dose prior to SAE: 05/Sep/2012
     Route: 042
     Dates: start: 20120905
  2. HERCEPTIN [Suspect]
     Indication: BREAST CANCER
     Dosage: Date of last dose prior to SAE: 05/Sep/2012
     Route: 042
     Dates: start: 20120905
  3. VINORELBINE TARTRATE [Suspect]
     Indication: BREAST CANCER
     Dosage: Date of last dose prior to SAE: 12/Sep/2012
     Route: 042
     Dates: start: 20120905
  4. ZOLPIDEM [Concomitant]
     Route: 065
     Dates: start: 20120718

REACTIONS (1)
  - Abdominal pain [Recovered/Resolved]
